FAERS Safety Report 8516382 (Version 3)
Quarter: 2013Q2

REPORT INFORMATION
  Report Type: Report from Study
  Country: US (occurrence: US)
  Receive Date: 20120417
  Receipt Date: 20130425
  Transmission Date: 20140414
  Serious: Yes (Death, Life-Threatening, Hospitalization)
  Sender: FDA-Public Use
  Company Number: US-ACTELION-A-NJ2012-63878

PATIENT
  Age: 59 Year
  Sex: Female
  Weight: 67.12 kg

DRUGS (19)
  1. VELETRI [Suspect]
     Indication: PULMONARY ARTERIAL HYPERTENSION
     Dosage: 32 NG/KG, PER MIN
     Route: 041
     Dates: start: 20111012, end: 20120402
  2. TRACLEER [Suspect]
     Indication: PULMONARY ARTERIAL HYPERTENSION
     Dosage: 125 MG, BID
     Route: 048
     Dates: start: 20110305, end: 20120402
  3. SILDENAFIL [Concomitant]
     Dosage: 20 MG, TID
     Route: 048
  4. COUMADIN [Concomitant]
     Dosage: 5 MG, ONCE
     Route: 048
  5. ASPIRIN [Concomitant]
     Dosage: 81 MG, QD
     Route: 048
  6. PREDNISONE [Concomitant]
     Dosage: 5 MG, QD
     Route: 048
  7. DIGOXIN [Concomitant]
     Dosage: 125 ?G, QD
     Route: 048
  8. FUROSEMIDE [Concomitant]
     Dosage: 40 MG, QD
     Route: 048
  9. FLUOXETINE [Concomitant]
     Dosage: 40 MG, QPM
     Route: 048
  10. ESOMEPRAZOLE [Concomitant]
     Dosage: 40 MG, QD
     Route: 048
  11. COLACE [Concomitant]
     Dosage: 100 MG, TID
     Route: 048
  12. PRAVASTATIN [Concomitant]
     Dosage: 10 MG, QPM
     Route: 048
  13. SENNA [Concomitant]
     Dosage: UNK, BID
     Route: 048
  14. MAGNESIUM SULFATE [Concomitant]
     Dosage: 1 G, ONCE
     Route: 042
  15. POLYVINYL ALCOHOL [Concomitant]
     Dosage: 1 DROP, BID
     Route: 047
  16. POTASSIUM CHLORIDE [Concomitant]
     Dosage: 30 MEQ, QD
     Route: 048
  17. ACETAMINOPHEN [Concomitant]
     Dosage: 650 MG, Q6HRS, PRN
     Route: 048
  18. ONDANSETRON [Concomitant]
     Dosage: 4 MG, TID, PRN
     Route: 042
  19. ZOLPIDEM [Concomitant]
     Dosage: 5 MG, QPM, PRN
     Route: 048

REACTIONS (9)
  - Death [Fatal]
  - Anaemia [Unknown]
  - Packed red blood cell transfusion [Unknown]
  - Thrombocytopenia [Unknown]
  - Pulmonary arterial hypertension [Recovered/Resolved]
  - Right ventricular failure [Recovered/Resolved]
  - Dyspnoea [Recovered/Resolved]
  - Oedema peripheral [Recovered/Resolved]
  - Condition aggravated [Recovered/Resolved]
